FAERS Safety Report 14261163 (Version 1)
Quarter: 2017Q4

REPORT INFORMATION
  Report Type: Spontaneous
  Country: US (occurrence: US)
  Receive Date: 20171207
  Receipt Date: 20171207
  Transmission Date: 20180321
  Serious: Yes (Hospitalization)
  Sender: FDA-Public Use
  Company Number: None

PATIENT
  Age: 53 Year
  Sex: Female
  Weight: 54 kg

DRUGS (1)
  1. KENALOG [Suspect]
     Active Substance: TRIAMCINOLONE ACETONIDE

REACTIONS (23)
  - Vomiting [None]
  - Abdominal pain [None]
  - Asthenia [None]
  - Palpitations [None]
  - White blood cell count decreased [None]
  - Dizziness [None]
  - Malaise [None]
  - Abdominal pain upper [None]
  - Blood glucose increased [None]
  - Pruritus [None]
  - Blood pressure decreased [None]
  - Pain [None]
  - Weight decreased [None]
  - Feeling abnormal [None]
  - Headache [None]
  - Contusion [None]
  - Feeding disorder [None]
  - Loss of personal independence in daily activities [None]
  - Vaginal haemorrhage [None]
  - Rash [None]
  - Chest pain [None]
  - Dehydration [None]
  - Tinnitus [None]

NARRATIVE: CASE EVENT DATE: 20170908
